FAERS Safety Report 15191484 (Version 1)
Quarter: 2018Q3

REPORT INFORMATION
  Report Type: Report from Study
  Country: US (occurrence: US)
  Receive Date: 20180724
  Receipt Date: 20180724
  Transmission Date: 20181010
  Serious: No
  Sender: FDA-Public Use
  Company Number: US-AMGEN-USASL2018016169

PATIENT
  Age: 59 Year
  Sex: Female

DRUGS (2)
  1. KYPROLIS [Suspect]
     Active Substance: CARFILZOMIB
     Indication: PLASMA CELL MYELOMA
     Dosage: UNK, TWICE A WEEK FOR 3 WEEKS THEN ONE WEEK OFF
     Route: 042
  2. POMALYST [Suspect]
     Active Substance: POMALIDOMIDE
     Indication: PLASMA CELL MYELOMA
     Dosage: UNK
     Route: 065

REACTIONS (12)
  - Feeling abnormal [Unknown]
  - Sleep disorder [Unknown]
  - Headache [Unknown]
  - Heart rate decreased [Unknown]
  - Fatigue [Not Recovered/Not Resolved]
  - Muscle tightness [Not Recovered/Not Resolved]
  - Pain [Unknown]
  - Off label use [Unknown]
  - Platelet count decreased [Unknown]
  - Nausea [Unknown]
  - Muscular weakness [Unknown]
  - Chills [Unknown]

NARRATIVE: CASE EVENT DATE: 2018
